FAERS Safety Report 18231640 (Version 2)
Quarter: 2020Q3

REPORT INFORMATION
  Report Type: Spontaneous
  Country: ES (occurrence: ES)
  Receive Date: 20200904
  Receipt Date: 20200909
  Transmission Date: 20201103
  Serious: Yes (Other)
  Sender: FDA-Public Use
  Company Number: ES-BIOVITRUM-2020ES4697

PATIENT
  Age: 61 Year
  Sex: Male

DRUGS (4)
  1. ANAKINRA [Suspect]
     Active Substance: ANAKINRA
     Dosage: 100 MG/24 H FOR 2 DAYS
     Route: 058
  2. ANAKINRA [Suspect]
     Active Substance: ANAKINRA
     Indication: COVID-19
     Dosage: 100 MG/12 H FOR 2 DAYS
     Route: 058
  3. METHYLPREDNISOLONE. [Concomitant]
     Active Substance: METHYLPREDNISOLONE
     Dosage: INTRAVENOUS METHYLPREDNISOLONE DOSE BY MG/KG/DAY, WITH TAPERING AT THE PHYSICIANS CRITERIA.
     Route: 042
  4. TOCILIZUMAB. [Concomitant]
     Active Substance: TOCILIZUMAB
     Dosage: SINGLE DOSE 400 MG IF BODY WEIGHT  IS LESSER THAN 75 KG, OR 600 MG IF GREATER.

REACTIONS (2)
  - Pneumomediastinum [Unknown]
  - Off label use [Unknown]
